FAERS Safety Report 9215530 (Version 1)
Quarter: 2013Q2

REPORT INFORMATION
  Report Type: Spontaneous
  Country: US (occurrence: US)
  Receive Date: 20130406
  Receipt Date: 20130406
  Transmission Date: 20140414
  Serious: No
  Sender: FDA-Public Use
  Company Number: US-009507513-1304USA002148

PATIENT
  Age: 70 Year
  Sex: Male

DRUGS (1)
  1. VYTORIN [Suspect]
     Indication: BLOOD CHOLESTEROL INCREASED
     Dosage: 10/40 MG, FREQUENCY NOT SPECIFIED
     Route: 048
     Dates: start: 200804, end: 2013

REACTIONS (3)
  - Insomnia [Unknown]
  - Fatigue [Unknown]
  - Sleep disorder [Unknown]
